FAERS Safety Report 9456144 (Version 1)
Quarter: 2013Q3

REPORT INFORMATION
  Report Type: Spontaneous
  Country: FR (occurrence: FR)
  Receive Date: 20130813
  Receipt Date: 20130813
  Transmission Date: 20140515
  Serious: Yes (Hospitalization)
  Sender: FDA-Public Use
  Company Number: FR-WATSON-2013-13979

PATIENT
  Age: 31 Year
  Sex: Female

DRUGS (4)
  1. AMOXICILLIN-CLAVULANATE (UNKNOWN) [Suspect]
     Indication: NASOPHARYNGITIS
     Dosage: 1 G, TID
     Route: 048
     Dates: start: 20110228, end: 20110302
  2. PARACETAMOL (UNKNOWN) [Suspect]
     Indication: PAIN
     Dosage: UNK, UNKNOWN
     Route: 048
     Dates: start: 20110228, end: 20110302
  3. PREDNISOLONE (UNKNOWN) [Suspect]
     Indication: NASOPHARYNGITIS
     Dosage: 60 MG, DAILY
     Route: 048
     Dates: start: 20110228
  4. AMOXICILLIN (UNKNOWN) [Suspect]
     Indication: NASOPHARYNGITIS
     Dosage: 1 G, TID
     Route: 048
     Dates: start: 20110215, end: 20110222

REACTIONS (2)
  - Laryngotracheal oedema [Recovered/Resolved]
  - Urticaria [Recovering/Resolving]
